FAERS Safety Report 10169916 (Version 3)
Quarter: 2015Q4

REPORT INFORMATION
  Report Type: Spontaneous
  Country: US (occurrence: US)
  Receive Date: 20140513
  Receipt Date: 20151113
  Transmission Date: 20160304
  Serious: Yes (Hospitalization, Other)
  Sender: FDA-Public Use
  Company Number: US-BAYER-2014-070503

PATIENT
  Age: 30 Year
  Sex: Female
  Weight: 124 kg

DRUGS (6)
  1. SEROQUEL [Concomitant]
     Active Substance: QUETIAPINE FUMARATE
     Dosage: 50 MG, UNK
     Dates: start: 20131118
  2. TRAMADOL. [Concomitant]
     Active Substance: TRAMADOL
     Indication: MUSCLE SPASMS
     Dosage: 50 MG, PRN
     Dates: start: 20131118
  3. MIRENA [Suspect]
     Active Substance: LEVONORGESTREL
     Indication: CONTRACEPTION
     Dosage: 20 MCG/24HR, CONT
     Route: 015
     Dates: start: 20130214, end: 20131118
  4. TRAZODONE HYDROCHLORIDE. [Concomitant]
     Active Substance: TRAZODONE HYDROCHLORIDE
     Dosage: 100 MG, UNK
     Dates: start: 20131107
  5. ZOLOFT [Concomitant]
     Active Substance: SERTRALINE HYDROCHLORIDE
     Indication: DEPRESSION
  6. HYDROCHLOROTHIAZIDE. [Concomitant]
     Active Substance: HYDROCHLOROTHIAZIDE
     Dosage: 25 MG, QD
     Dates: start: 20131118

REACTIONS (12)
  - Injury [Not Recovered/Not Resolved]
  - Device use error [None]
  - Device issue [Not Recovered/Not Resolved]
  - Genital haemorrhage [None]
  - Post procedural discomfort [None]
  - Uterine perforation [Not Recovered/Not Resolved]
  - Depression [None]
  - Pain [Not Recovered/Not Resolved]
  - Fibromyalgia [None]
  - Tension headache [None]
  - Procedural pain [None]
  - Anxiety [None]

NARRATIVE: CASE EVENT DATE: 2013
